FAERS Safety Report 7805511-4 (Version None)
Quarter: 2011Q4

REPORT INFORMATION
  Report Type: 
  Country: None (occurrence: None)
  Receive Date: 20111010
  Receipt Date: 20111005
  Transmission Date: 20120403
  Serious: Yes (Other)
  Sender: FDA-Public Use
  Company Number: PHHY2011JP88237

PATIENT
  Sex: Male

DRUGS (2)
  1. DIURETICS [Concomitant]
     Dosage: UNK
  2. LAMISIL [Suspect]
     Route: 048

REACTIONS (2)
  - RENAL IMPAIRMENT [None]
  - OEDEMA [None]
